FAERS Safety Report 9098447 (Version 1)
Quarter: 2013Q1

REPORT INFORMATION
  Report Type: Spontaneous
  Country: ZA (occurrence: ZA)
  Receive Date: 20130213
  Receipt Date: 20130213
  Transmission Date: 20140127
  Serious: Yes (Hospitalization)
  Sender: FDA-Public Use
  Company Number: ZA-MYLANLABS-2013S1002506

PATIENT
  Age: 20 Year
  Sex: Female

DRUGS (2)
  1. AMITRIPTYLINE [Suspect]
     Indication: INTENTIONAL OVERDOSE
     Route: 065
  2. PARACETAMOL [Suspect]
     Indication: INTENTIONAL OVERDOSE
     Route: 065

REACTIONS (5)
  - Overdose [Recovered/Resolved]
  - Intentional overdose [Recovered/Resolved]
  - Cardiotoxicity [Recovered/Resolved]
  - Haemodynamic instability [Recovered/Resolved]
  - Status epilepticus [Recovered/Resolved]
